FAERS Safety Report 16827082 (Version 1)
Quarter: 2019Q3

REPORT INFORMATION
  Report Type: Report from Study
  Country: PL (occurrence: PL)
  Receive Date: 20190919
  Receipt Date: 20190919
  Transmission Date: 20191005
  Serious: Yes (Hospitalization)
  Sender: FDA-Public Use
  Company Number: PL-PFIZER INC-2019396898

PATIENT
  Age: 66 Year
  Sex: Male
  Weight: 85 kg

DRUGS (11)
  1. METHOTREXATE. [Concomitant]
     Active Substance: METHOTREXATE
     Indication: RHEUMATOID ARTHRITIS
     Dosage: UNK
     Dates: start: 20130402
  2. IPP20 [Concomitant]
     Indication: PROPHYLAXIS
     Dosage: UNK
     Dates: start: 20170218
  3. FOLIC ACID. [Concomitant]
     Active Substance: FOLIC ACID
     Indication: RHEUMATOID ARTHRITIS
     Dosage: UNK
     Dates: start: 20080204
  4. PERINDOPRIL ARGININE [Concomitant]
     Active Substance: PERINDOPRIL ARGININE
     Indication: HYPERTENSION
     Dosage: UNK
     Dates: start: 20141125, end: 20190617
  5. BETAHISTINE DIHYDROCHLORIDE [Concomitant]
     Active Substance: BETAHISTINE
     Indication: ARRHYTHMIA
     Dosage: UNK
     Dates: start: 20160909
  6. TORASEMIDE [Concomitant]
     Active Substance: TORSEMIDE
     Indication: MYOCARDIAL ISCHAEMIA
     Dosage: UNK
     Dates: start: 20170218, end: 20190617
  7. BISOPROLOL FUMARATE. [Concomitant]
     Active Substance: BISOPROLOL FUMARATE
     Indication: MYOCARDIAL ISCHAEMIA
     Dosage: UNK
     Dates: start: 20170218, end: 20190617
  8. TOFACITINIB CITRATE [Suspect]
     Active Substance: TOFACITINIB CITRATE
     Indication: RHEUMATOID ARTHRITIS
     Dosage: 5 MG, 2X/DAY
     Route: 048
     Dates: start: 20150311, end: 20190617
  9. POLPRIL [Concomitant]
     Active Substance: RAMIPRIL
     Indication: MYOCARDIAL ISCHAEMIA
     Dosage: UNK
     Dates: start: 20170218
  10. ROSUVASTATIN. [Concomitant]
     Active Substance: ROSUVASTATIN
     Indication: MYOCARDIAL ISCHAEMIA
     Dosage: UNK
     Dates: start: 20170218
  11. ACARD [Concomitant]
     Active Substance: ASPIRIN
     Indication: MYOCARDIAL ISCHAEMIA
     Dosage: UNK
     Dates: start: 20170218

REACTIONS (1)
  - Cerebrovascular disorder [Recovered/Resolved]

NARRATIVE: CASE EVENT DATE: 20190617
